FAERS Safety Report 4882053-X (Version None)
Quarter: 2006Q1

REPORT INFORMATION
  Report Type: 
  Country: None (occurrence: None)
  Receive Date: 20060113
  Receipt Date: 20060113
  Transmission Date: 20060701
  Serious: Yes (Hospitalization, Other)
  Sender: FDA-Public Use
  Company Number: None

PATIENT
  Sex: Female
  Weight: 122 kg

DRUGS (2)
  1. PACLITAXEL [Suspect]
     Indication: BREAST CANCER
     Dosage: SEE IMAGE
     Route: 042
     Dates: start: 20051213, end: 20051220
  2. GEMCITABINE [Suspect]
     Dosage: SEE IMAGE
     Dates: start: 20051213, end: 20051220

REACTIONS (6)
  - DEHYDRATION [None]
  - HYPOTENSION [None]
  - HYPOVOLAEMIC SHOCK [None]
  - NAUSEA [None]
  - PAIN [None]
  - VOMITING [None]
